FAERS Safety Report 5323369-2 (Version None)
Quarter: 2007Q2

REPORT INFORMATION
  Report Type: 
  Country: None (occurrence: None)
  Receive Date: 20070514
  Receipt Date: 20070509
  Transmission Date: 20071010
  Serious: Yes (Life-Threatening, Hospitalization)
  Sender: FDA-Public Use
  Company Number: PHBS2007FR07818

PATIENT
  Age: 100 Year
  Sex: Female

DRUGS (5)
  1. CIBACEN [Suspect]
     Dosage: UNK, UNK
     Route: 048
     Dates: start: 20070315
  2. ACETYLSALICYLIC ACID SRT [Suspect]
     Route: 048
     Dates: end: 20070325
  3. ALDACTAZINE [Concomitant]
  4. CORDARONE [Concomitant]
  5. AUGMENTIN '125' [Concomitant]
     Indication: URINARY TRACT INFECTION
     Dates: start: 20070315

REACTIONS (17)
  - ANAEMIA [None]
  - ANURIA [None]
  - C-REACTIVE PROTEIN INCREASED [None]
  - FAECES DISCOLOURED [None]
  - GASTRIC ULCER [None]
  - GASTROINTESTINAL HAEMORRHAGE [None]
  - GASTROINTESTINAL NECROSIS [None]
  - GENERAL PHYSICAL HEALTH DETERIORATION [None]
  - HAEMOGLOBIN DECREASED [None]
  - HYPERKALAEMIA [None]
  - ISCHAEMIC HEPATITIS [None]
  - MELAENA [None]
  - METABOLIC ACIDOSIS [None]
  - PALLOR [None]
  - PLEURAL EFFUSION [None]
  - RENAL FAILURE ACUTE [None]
  - SHOCK HAEMORRHAGIC [None]
